FAERS Safety Report 6754028-7 (Version None)
Quarter: 2010Q2

REPORT INFORMATION
  Report Type: 
  Country: None (occurrence: None)
  Receive Date: 20100603
  Receipt Date: 20100526
  Transmission Date: 20101027
  Serious: Yes (Other)
  Sender: FDA-Public Use
  Company Number: B0658640A

PATIENT

DRUGS (2)
  1. AUGMENTIN '125' [Suspect]
     Indication: DRUG USE FOR UNKNOWN INDICATION
     Route: 042
  2. AUGMENTIN '125' [Suspect]
     Route: 065

REACTIONS (1)
  - DRUG INEFFECTIVE [None]
